FAERS Safety Report 10700497 (Version 1)
Quarter: 2015Q1

REPORT INFORMATION
  Report Type: Spontaneous
  Country: US (occurrence: None)
  Receive Date: 20150108
  Receipt Date: 20150108
  Transmission Date: 20150721
  Serious: No
  Sender: FDA-Public Use
  Company Number: None

PATIENT
  Age: 92 Year
  Sex: Male
  Weight: 65.9 kg

DRUGS (1)
  1. SF 1.1 GEL [Suspect]
     Active Substance: SODIUM FLUORIDE
     Indication: DENTAL DISORDER PROPHYLAXIS
     Dosage: THIN FILM IN TRAY
     Route: 048
     Dates: start: 201410

REACTIONS (1)
  - Secretion discharge [None]
